FAERS Safety Report 5149644-2 (Version None)
Quarter: 2006Q4

REPORT INFORMATION
  Report Type: 
  Country: None (occurrence: None)
  Receive Date: 20061113
  Receipt Date: 20060705
  Transmission Date: 20070319
  Serious: No
  Sender: FDA-Public Use
  Company Number: US-GLAXOSMITHKLINE-A0611145A

PATIENT
  Age: 55 Year
  Sex: Female

DRUGS (5)
  1. COREG [Suspect]
     Dosage: 50MG PER DAY
     Route: 048
     Dates: start: 19990101
  2. LIPITOR [Concomitant]
  3. PRINIVIL [Concomitant]
  4. ALDACTONE [Concomitant]
  5. LASIX [Concomitant]

REACTIONS (4)
  - DIZZINESS [None]
  - DYSPNOEA [None]
  - FATIGUE [None]
  - HEART RATE DECREASED [None]
